FAERS Safety Report 14639379 (Version 1)
Quarter: 2018Q1

REPORT INFORMATION
  Report Type: Spontaneous
  Country: US (occurrence: US)
  Receive Date: 20180315
  Receipt Date: 20180315
  Transmission Date: 20180509
  Serious: Yes (Other)
  Sender: FDA-Public Use
  Company Number: US-AMGEN-USASP2018034962

PATIENT
  Age: 58 Year
  Sex: Female

DRUGS (2)
  1. NEUPOGEN [Suspect]
     Active Substance: FILGRASTIM
     Indication: IDIOPATHIC NEUTROPENIA
     Dosage: 9 MUG, QD (DAILY)
     Route: 065
  2. NEUPOGEN [Suspect]
     Active Substance: FILGRASTIM
     Indication: CYCLIC NEUTROPENIA

REACTIONS (6)
  - Neutrophil count abnormal [Unknown]
  - Exposure to allergen [Unknown]
  - Contusion [Recovered/Resolved]
  - Pneumonia aspiration [Unknown]
  - Intentional product misuse [Unknown]
  - Exposure to mould [Unknown]

NARRATIVE: CASE EVENT DATE: 2017
